FAERS Safety Report 9960477 (Version 1)
Quarter: 2014Q1

REPORT INFORMATION
  Report Type: Report from Study
  Country: US (occurrence: US)
  Receive Date: 20140305
  Receipt Date: 20140305
  Transmission Date: 20141002
  Serious: No
  Sender: FDA-Public Use
  Company Number: US-ABBVIE-13P-163-1110737-00

PATIENT
  Age: 66 Year
  Sex: Female

DRUGS (17)
  1. HUMIRA [Suspect]
     Indication: PSORIATIC ARTHROPATHY
     Dates: start: 20121206
  2. METHOTREXATE [Concomitant]
     Indication: PRODUCT USED FOR UNKNOWN INDICATION
  3. VIT D [Concomitant]
     Indication: PRODUCT USED FOR UNKNOWN INDICATION
  4. OMEPRAZOLE [Concomitant]
     Indication: GASTROOESOPHAGEAL REFLUX DISEASE
     Dosage: 20MG DAILY
  5. METOPROLOL [Concomitant]
     Indication: HYPERTENSION
     Dosage: 50MG DAILY
  6. FOLIC ACID [Concomitant]
     Indication: PRODUCT USED FOR UNKNOWN INDICATION
     Dosage: 1MG DAILY
  7. AMLODIPINE [Concomitant]
     Indication: HYPERTENSION
     Dosage: 5MG DAILY
  8. ETODOLAC [Concomitant]
     Indication: PSORIATIC ARTHROPATHY
  9. CALCIUM + VIT D [Concomitant]
     Indication: PRODUCT USED FOR UNKNOWN INDICATION
     Dosage: 600MG DAILY
  10. VIT B12 [Concomitant]
     Indication: PRODUCT USED FOR UNKNOWN INDICATION
     Dosage: 5000MCG DAILY
  11. VIT D3 [Concomitant]
     Indication: PRODUCT USED FOR UNKNOWN INDICATION
     Dosage: 400 IU DAILY
  12. ASPIRIN [Concomitant]
     Indication: PRODUCT USED FOR UNKNOWN INDICATION
     Dosage: 81MG DAILY
  13. AMITRIPTYLINE [Concomitant]
     Indication: DEPRESSION
     Dosage: 100MG DAILY
  14. LEXAPRO [Concomitant]
     Indication: PRODUCT USED FOR UNKNOWN INDICATION
     Dosage: 10 MG DAILY
  15. KLOR-CON [Concomitant]
     Indication: BLOOD POTASSIUM DECREASED
     Dosage: 10MG DAILY
  16. LEVOTHYROXINE [Concomitant]
     Indication: HYPOTHYROIDISM
     Dosage: 75MCG DAILY
  17. LEVOTHYROXINE [Concomitant]
     Dosage: 100MCG DAILY
     Dates: start: 20130710

REACTIONS (4)
  - Musculoskeletal stiffness [Unknown]
  - Drug ineffective [Unknown]
  - Immune system disorder [Unknown]
  - Pain [Unknown]
